FAERS Safety Report 11796185 (Version 1)
Quarter: 2015Q4

REPORT INFORMATION
  Report Type: Spontaneous
  Country: US (occurrence: US)
  Receive Date: 20151203
  Receipt Date: 20151203
  Transmission Date: 20160305
  Serious: Yes (Other)
  Sender: FDA-Public Use
  Company Number: CHPA2015US014229

PATIENT
  Age: 88 Year
  Sex: Female

DRUGS (2)
  1. VOLTAREN [Suspect]
     Active Substance: DICLOFENAC SODIUM
     Indication: RHEUMATOID ARTHRITIS
     Dosage: 2 G, QD
     Route: 061
     Dates: start: 201511, end: 20151124
  2. VOLTAREN [Suspect]
     Active Substance: DICLOFENAC SODIUM
     Indication: OSTEOARTHRITIS

REACTIONS (8)
  - Drug administered at inappropriate site [Unknown]
  - Headache [Recovered/Resolved]
  - Product use issue [Unknown]
  - Incorrect dose administered [Unknown]
  - Hypertension [Recovered/Resolved]
  - Hypertension [Recovered/Resolved]
  - Headache [Recovered/Resolved]
  - Inappropriate schedule of drug administration [Unknown]

NARRATIVE: CASE EVENT DATE: 201511
